FAERS Safety Report 23456780 (Version 2)
Quarter: 2024Q1

REPORT INFORMATION
  Report Type: Spontaneous
  Country: JP (occurrence: None)
  Receive Date: 20240130
  Receipt Date: 20240209
  Transmission Date: 20240410
  Serious: Yes (Death)
  Sender: FDA-Public Use
  Company Number: 2024A021823

PATIENT
  Age: 82 Year

DRUGS (2)
  1. IMFINZI [Suspect]
     Active Substance: DURVALUMAB
     Indication: Non-small cell lung cancer
     Dosage: DOSE UNKNOWN
     Route: 041
     Dates: start: 20231026
  2. IMJUDO [Suspect]
     Active Substance: TREMELIMUMAB\TREMELIMUMAB-ACTL
     Indication: Non-small cell lung cancer
     Dosage: DOSE UNKNOWN
     Route: 041
     Dates: start: 20231026

REACTIONS (2)
  - Enterocolitis bacterial [Fatal]
  - Gastrointestinal haemorrhage [Fatal]
